FAERS Safety Report 9748733 (Version 2)
Quarter: 2014Q1

REPORT INFORMATION
  Report Type: Spontaneous
  Country: US (occurrence: None)
  Receive Date: 20131209
  Receipt Date: 20140128
  Transmission Date: 20141002
  Serious: Yes (Other)
  Sender: FDA-Public Use
  Company Number: 2013EXPUS00159

PATIENT
  Age: 86 Year
  Sex: Male

DRUGS (2)
  1. EXPAREL [Suspect]
     Indication: POSTOPERATIVE ANALGESIA
     Dates: start: 20131126, end: 20131126
  2. MARCAINE (BUPIVACAINE HYDROCHLORIDE) [Concomitant]

REACTIONS (1)
  - Peroneal nerve palsy [None]
